FAERS Safety Report 10177133 (Version 5)
Quarter: 2015Q1

REPORT INFORMATION
  Report Type: Report from Study
  Country: US (occurrence: US)
  Receive Date: 20140516
  Receipt Date: 20150115
  Transmission Date: 20150720
  Serious: Yes (Hospitalization, Other)
  Sender: FDA-Public Use
  Company Number: US-ALEXION PHARMACEUTICALS INC.-A201401742

PATIENT

DRUGS (2)
  1. AMLODIPINE [Concomitant]
     Active Substance: AMLODIPINE BESYLATE
     Indication: HYPERTENSION
     Dosage: .7 MG, BID
     Route: 065
     Dates: start: 20140419
  2. SOLIRIS [Suspect]
     Active Substance: ECULIZUMAB
     Indication: HAEMOLYTIC URAEMIC SYNDROME
     Dosage: 300 MG, ONCE EVERY THREE WEEKS
     Route: 042
     Dates: start: 20140420

REACTIONS (15)
  - Hypertension [Not Recovered/Not Resolved]
  - Proteinuria [Recovering/Resolving]
  - Insomnia [Unknown]
  - Flushing [Recovered/Resolved]
  - Nasopharyngitis [Unknown]
  - Rash [Not Recovered/Not Resolved]
  - Nasopharyngitis [Unknown]
  - Gene mutation [Not Recovered/Not Resolved]
  - Palliative care [Unknown]
  - Upper respiratory tract infection [Unknown]
  - Crying [Not Recovered/Not Resolved]
  - Irritability [Not Recovered/Not Resolved]
  - Haematuria [Unknown]
  - Blood pressure increased [Recovered/Resolved]
  - Pyrexia [Unknown]

NARRATIVE: CASE EVENT DATE: 2014
